FAERS Safety Report 6184280-0 (Version None)
Quarter: 2009Q2

REPORT INFORMATION
  Report Type: 
  Country: None (occurrence: None)
  Receive Date: 20090508
  Receipt Date: 20090427
  Transmission Date: 20091009
  Serious: Yes (Other)
  Sender: FDA-Public Use
  Company Number: GB-ELI_LILLY_AND_COMPANY-GB200902002372

PATIENT
  Sex: Male
  Weight: 35.5 kg

DRUGS (3)
  1. STRATTERA [Suspect]
     Indication: ATTENTION DEFICIT/HYPERACTIVITY DISORDER
     Dosage: UNK, UNKNOWN
     Route: 048
     Dates: start: 20081121
  2. STRATTERA [Suspect]
     Dosage: 25 MG, UNKNOWN
     Route: 048
     Dates: end: 20090122
  3. EQUASYM [Concomitant]
     Indication: ATTENTION DEFICIT/HYPERACTIVITY DISORDER
     Dosage: 10 MG, UNKNOWN
     Route: 048

REACTIONS (2)
  - MYDRIASIS [None]
  - VISION BLURRED [None]
